FAERS Safety Report 7542465-2 (Version None)
Quarter: 2011Q2

REPORT INFORMATION
  Report Type: 
  Country: None (occurrence: None)
  Receive Date: 20110606
  Receipt Date: 20110531
  Transmission Date: 20111010
  Serious: Yes (Hospitalization, Other)
  Sender: FDA-Public Use
  Company Number: WAES 1105USA01391

PATIENT
  Age: 51 Year
  Sex: Female
  Weight: 54.8852 kg

DRUGS (16)
  1. CHANTIX [Suspect]
     Indication: TOBACCO USER
     Dosage: 1 MG/BID 0.5 MG/PO 0.5 MG/PO 1 MG/PO 0.5 MG/DAILY
     Route: 048
     Dates: start: 20060101, end: 20060101
  2. CHANTIX [Suspect]
     Indication: TOBACCO USER
     Dosage: 1 MG/BID 0.5 MG/PO 0.5 MG/PO 1 MG/PO 0.5 MG/DAILY
     Route: 048
     Dates: start: 20110101, end: 20110101
  3. CHANTIX [Suspect]
     Indication: TOBACCO USER
     Dosage: 1 MG/BID 0.5 MG/PO 0.5 MG/PO 1 MG/PO 0.5 MG/DAILY
     Route: 048
     Dates: start: 20110101, end: 20110504
  4. CHANTIX [Suspect]
     Indication: TOBACCO USER
     Dosage: 1 MG/BID 0.5 MG/PO 0.5 MG/PO 1 MG/PO 0.5 MG/DAILY
     Route: 048
     Dates: start: 20110301, end: 20110401
  5. CHANTIX [Suspect]
     Indication: TOBACCO USER
     Dosage: 1 MG/BID 0.5 MG/PO 0.5 MG/PO 1 MG/PO 0.5 MG/DAILY
     Route: 048
     Dates: start: 20060101, end: 20060101
  6. CHANTIX [Suspect]
     Indication: TOBACCO USER
     Dosage: 1 MG/BID 0.5 MG/PO 0.5 MG/PO 1 MG/PO 0.5 MG/DAILY
     Route: 048
     Dates: start: 20080101
  7. CHANTIX [Suspect]
     Indication: TOBACCO USER
     Dosage: 1 MG/BID 0.5 MG/PO 0.5 MG/PO 1 MG/PO 0.5 MG/DAILY
     Route: 048
     Dates: start: 20110101, end: 20110101
  8. LEVOTHYROXINE SODIUM [Concomitant]
  9. LYRICA [Concomitant]
  10. CRESTOR [Concomitant]
  11. NEXIUM [Concomitant]
  12. COUMADIN [Concomitant]
  13. FOSAMAX [Suspect]
     Indication: OSTEOPENIA
     Dosage: PO
     Route: 048
  14. COREG [Concomitant]
  15. SYNTHROID [Concomitant]
  16. DIAZEPAM [Concomitant]

REACTIONS (28)
  - ALOPECIA [None]
  - FEELING ABNORMAL [None]
  - SWOLLEN TONGUE [None]
  - STRESS [None]
  - PAIN IN EXTREMITY [None]
  - MALAISE [None]
  - CEREBROVASCULAR ACCIDENT [None]
  - CLUSTER HEADACHE [None]
  - PERIPHERAL COLDNESS [None]
  - MOVEMENT DISORDER [None]
  - MYOCARDIAL INFARCTION [None]
  - DEPRESSION [None]
  - CRYING [None]
  - TRANSIENT ISCHAEMIC ATTACK [None]
  - DEVICE MALFUNCTION [None]
  - CARDIAC DISORDER [None]
  - TINNITUS [None]
  - EXPIRED DRUG ADMINISTERED [None]
  - VOMITING [None]
  - LABORATORY TEST ABNORMAL [None]
  - MIGRAINE [None]
  - HYPOAESTHESIA [None]
  - DRUG LEVEL INCREASED [None]
  - WEIGHT DECREASED [None]
  - TACHYCARDIA [None]
  - ROAD TRAFFIC ACCIDENT [None]
  - BONE MARROW DISORDER [None]
  - UNEVALUABLE EVENT [None]
